FAERS Safety Report 5138197-0 (Version None)
Quarter: 2006Q4

REPORT INFORMATION
  Report Type: 
  Country: None (occurrence: None)
  Receive Date: 20061025
  Receipt Date: 20061025
  Transmission Date: 20070319
  Serious: No
  Sender: FDA-Public Use
  Company Number: None

PATIENT
  Age: 41 Year
  Sex: Female
  Weight: 68.3 kg

DRUGS (8)
  1. MULTIHANCE [Suspect]
     Indication: NUCLEAR MAGNETIC RESONANCE IMAGING
     Dosage: 15 ML (529 MG/ML) IV X 1 DOSE
     Route: 042
  2. GABAPENTIN [Concomitant]
  3. VITAMIC C [Concomitant]
  4. ECHINACEA [Concomitant]
  5. PROGESTERONE [Concomitant]
  6. PROCALCIN [Concomitant]
  7. PROTEC [Concomitant]
  8. EVENING PRIMROSE [Concomitant]

REACTIONS (2)
  - NAUSEA [None]
  - URTICARIA [None]
